FAERS Safety Report 10670022 (Version 1)
Quarter: 2014Q4

REPORT INFORMATION
  Report Type: Spontaneous
  Country: IR (occurrence: IR)
  Receive Date: 20141223
  Receipt Date: 20141223
  Transmission Date: 20150529
  Serious: Yes (Other)
  Sender: FDA-Public Use
  Company Number: IR-ACCORD-027739

PATIENT
  Age: 61 Year
  Sex: Male

DRUGS (3)
  1. MYCOPHENOLIC ACID. [Suspect]
     Active Substance: MYCOPHENOLIC ACID
     Indication: RENAL TRANSPLANT
     Dosage: AT THE TIME OF THIS REPORT: MYCOPHENOLATE MOFETIL 1.5 GM DAILY
  2. CICLOSPORIN [Suspect]
     Active Substance: CYCLOSPORINE
     Indication: RENAL TRANSPLANT
     Dosage: AT THE TIME OF THIS REPORT: CYCLOSPORINE 50 MG TWICE DAILY
  3. PREDNISOLONE. [Suspect]
     Active Substance: PREDNISOLONE
     Indication: RENAL TRANSPLANT
     Dosage: AT THE TIME OF THIS REPORT: PREDNISOLONE 5 MG DAILY

REACTIONS (1)
  - Chronic myeloid leukaemia [Recovering/Resolving]
